FAERS Safety Report 7032849-3 (Version None)
Quarter: 2010Q4

REPORT INFORMATION
  Report Type: 
  Country: None (occurrence: None)
  Receive Date: 20101007
  Receipt Date: 20100503
  Transmission Date: 20110411
  Serious: No
  Sender: FDA-Public Use
  Company Number: US-PFIZER INC-2010056373

PATIENT
  Sex: Female
  Weight: 57 kg

DRUGS (2)
  1. MECLIZINE HCL [Suspect]
     Indication: VERTIGO
     Dosage: UNK
     Route: 048
  2. MECLIZINE HCL [Suspect]
     Indication: CONVULSION

REACTIONS (1)
  - DRUG INEFFECTIVE [None]
